FAERS Safety Report 14180458 (Version 2)
Quarter: 2018Q1

REPORT INFORMATION
  Report Type: Spontaneous
  Country: JP (occurrence: JP)
  Receive Date: 20171110
  Receipt Date: 20180328
  Transmission Date: 20180508
  Serious: Yes (Hospitalization)
  Sender: FDA-Public Use
  Company Number: JP-DSJP-DSJ-2017-153591AA

PATIENT

DRUGS (8)
  1. ARTIST [Concomitant]
     Active Substance: CARVEDILOL
     Indication: CEREBRAL INFARCTION
     Dosage: 5 MG, QD
     Route: 048
     Dates: end: 20171105
  2. ALDACTONE A [Concomitant]
     Active Substance: SPIRONOLACTONE
     Indication: CEREBRAL INFARCTION
     Dosage: 25 MG, QD
     Route: 048
     Dates: end: 20171105
  3. HALFDIGOXIN KY [Concomitant]
     Indication: CEREBRAL INFARCTION
     Dosage: 1.125 MG, QD
     Route: 048
     Dates: end: 20171105
  4. ALDACTONE A [Concomitant]
     Active Substance: SPIRONOLACTONE
     Dosage: 25 MG, QD
     Route: 048
     Dates: start: 20171109
  5. ARTIST [Concomitant]
     Active Substance: CARVEDILOL
     Dosage: 5 MG, QD
     Route: 048
     Dates: start: 20171109
  6. LIXIANA TABLETS 60MG [Suspect]
     Active Substance: EDOXABAN TOSYLATE
     Dosage: 30 MG, QD
     Route: 048
     Dates: start: 20171109
  7. HALFDIGOXIN KY [Concomitant]
     Dosage: 0.125 MG, QD
     Route: 048
     Dates: start: 20171109, end: 20171111
  8. LIXIANA TABLETS 60MG [Suspect]
     Active Substance: EDOXABAN TOSYLATE
     Indication: ATRIAL FIBRILLATION
     Dosage: 30 MG, QD
     Route: 048
     Dates: end: 20171105

REACTIONS (1)
  - Cerebral infarction [Recovered/Resolved with Sequelae]

NARRATIVE: CASE EVENT DATE: 20171105
